FAERS Safety Report 9242512 (Version 3)
Quarter: 2014Q1

REPORT INFORMATION
  Report Type: Spontaneous
  Country: JP (occurrence: JP)
  Receive Date: 20130419
  Receipt Date: 20140123
  Transmission Date: 20141002
  Serious: Yes (Other)
  Sender: FDA-Public Use
  Company Number: JP-MPIJNJ-2012-08665

PATIENT
  Sex: 0

DRUGS (5)
  1. VELCADE [Suspect]
     Indication: PLASMA CELL MYELOMA
     Dosage: 1.3 MG/ML,
     Route: 042
     Dates: start: 200809
  2. DECADRON [Suspect]
     Indication: PLASMA CELL MYELOMA
     Dosage: 40 MG, UNK
     Route: 048
     Dates: start: 200809
  3. DOXORUBICIN [Suspect]
     Indication: PLASMA CELL MYELOMA
     Route: 065
  4. VINCRISTINE [Suspect]
     Indication: PLASMA CELL MYELOMA
     Route: 065
  5. ITRACONAZOLE [Suspect]
     Indication: FUNGAL INFECTION
     Dosage: UNK
     Dates: start: 200809

REACTIONS (3)
  - Drug interaction [Unknown]
  - Platelet count decreased [Recovered/Resolved]
  - Neuropathy peripheral [Recovering/Resolving]
